FAERS Safety Report 9983804 (Version 2)
Quarter: 2014Q1

REPORT INFORMATION
  Report Type: Spontaneous
  Country: JP (occurrence: JP)
  Receive Date: 20140307
  Receipt Date: 20140319
  Transmission Date: 20141002
  Serious: Yes (Other)
  Sender: FDA-Public Use
  Company Number: JP-GLAXOSMITHKLINE-B0968900A

PATIENT
  Age: 43 Year
  Sex: Male

DRUGS (6)
  1. RELVAR ELLIPTA (FLUTICASONE FUROATE/VILANTEROL) [Suspect]
     Indication: PRODUCT USED FOR UNKNOWN INDICATION
     Dosage: 200MCG PER DAY
     Route: 055
     Dates: start: 20140110, end: 20140207
  2. SINGULAIR [Concomitant]
     Route: 048
  3. OLOPATADINE HYDROCHLORIDE [Concomitant]
     Route: 048
  4. MUCODYNE [Concomitant]
     Route: 048
  5. NEOMALLERMIN [Concomitant]
     Route: 048
  6. AMLODIN [Concomitant]
     Route: 048

REACTIONS (4)
  - Drug eruption [Recovering/Resolving]
  - Rash generalised [Recovering/Resolving]
  - Erythema multiforme [Unknown]
  - Pruritus generalised [Unknown]
